FAERS Safety Report 26184179 (Version 1)
Quarter: 2025Q4

REPORT INFORMATION
  Report Type: Spontaneous
  Country: EU (occurrence: EU)
  Receive Date: 20251222
  Receipt Date: 20251222
  Transmission Date: 20260117
  Serious: Yes (Hospitalization, Other)
  Sender: AUROBINDO
  Company Number: EU-AFSSAPS-TS2025001231

PATIENT
  Age: 1 Day
  Sex: Female
  Weight: 1.4 kg

DRUGS (4)
  1. RISPERIDONE [Suspect]
     Active Substance: RISPERIDONE
     Indication: Psychotic disorder
     Dosage: 3 MILLIGRAM, ONCE A DAY
     Route: 065
     Dates: start: 202510, end: 20251124
  2. SERTRALINE [Suspect]
     Active Substance: SERTRALINE HYDROCHLORIDE
     Indication: Psychotic disorder
     Dosage: 150 MILLIGRAM, ONCE A DAY
     Route: 065
     Dates: start: 202510, end: 20251124
  3. CYAMEMAZINE [Suspect]
     Active Substance: CYAMEMAZINE
     Indication: Psychotic disorder
     Dosage: 5 MILLIGRAM, FOUR TIMES/DAY
     Route: 065
     Dates: start: 202510, end: 20251124
  4. TRANDATE [Suspect]
     Active Substance: LABETALOL HYDROCHLORIDE
     Indication: Hypertension
     Dosage: 200 MILLIGRAM, ONCE A DAY
     Route: 065
     Dates: start: 2025, end: 20251124

REACTIONS (5)
  - Foetal growth restriction [Recovering/Resolving]
  - Respiratory disorder [Recovering/Resolving]
  - Constipation [Recovering/Resolving]
  - Tremor [Recovering/Resolving]
  - Maternal exposure during pregnancy [Recovered/Resolved]

NARRATIVE: CASE EVENT DATE: 20251124
